FAERS Safety Report 13775526 (Version 1)
Quarter: 2017Q3

REPORT INFORMATION
  Report Type: Spontaneous
  Country: US (occurrence: US)
  Receive Date: 20170720
  Receipt Date: 20170720
  Transmission Date: 20171127
  Serious: Yes (Hospitalization)
  Sender: FDA-Public Use
  Company Number: US-ASTRAZENECA-2017SE72632

PATIENT
  Age: 621 Month
  Sex: Female
  Weight: 63.5 kg

DRUGS (11)
  1. PULMICORT FLEXHALER [Suspect]
     Active Substance: BUDESONIDE
     Indication: ASTHMA
     Route: 055
     Dates: start: 2017
  2. LATUDA [Concomitant]
     Active Substance: LURASIDONE HYDROCHLORIDE
     Dosage: INCREASED
     Route: 048
     Dates: start: 2013
  3. ATROVENT [Concomitant]
     Active Substance: IPRATROPIUM BROMIDE
     Indication: INHALATION THERAPY
     Dosage: AS NEEDED USING IT 6 TO 9 TIMES DAILY
     Route: 055
  4. ALBUTEROL. [Concomitant]
     Active Substance: ALBUTEROL
     Indication: ASTHMA
     Dosage: AS NEEDED USING IT 6 TO 9 TIMES DAILY
     Route: 055
  5. SPIRIVA [Concomitant]
     Active Substance: TIOTROPIUM BROMIDE MONOHYDRATE
     Indication: ASTHMA
     Route: 055
     Dates: start: 201702
  6. LORATADINE. [Concomitant]
     Active Substance: LORATADINE
     Indication: ASTHMA
     Route: 048
     Dates: start: 201702
  7. MONTELUKAST [Concomitant]
     Active Substance: MONTELUKAST SODIUM
     Indication: ASTHMA
     Route: 048
     Dates: start: 201702
  8. PRILOSEC [Suspect]
     Active Substance: OMEPRAZOLE MAGNESIUM
     Indication: GASTROOESOPHAGEAL REFLUX DISEASE
     Route: 048
     Dates: start: 2007
  9. PRILOSEC [Suspect]
     Active Substance: OMEPRAZOLE MAGNESIUM
     Indication: GASTROOESOPHAGEAL REFLUX DISEASE
     Route: 048
     Dates: start: 201702
  10. BREEO ELIPTA [Concomitant]
     Indication: ASTHMA
     Dosage: 200/25, DAILY
     Route: 055
  11. LATUDA [Concomitant]
     Active Substance: LURASIDONE HYDROCHLORIDE
     Route: 048
     Dates: start: 2013

REACTIONS (15)
  - Blood sodium decreased [Unknown]
  - Off label use [Unknown]
  - Dyspepsia [Unknown]
  - Bronchitis [Recovered/Resolved]
  - Cognitive disorder [Unknown]
  - Vomiting [Unknown]
  - Emotional distress [Unknown]
  - Product use in unapproved indication [Unknown]
  - Asthma [Unknown]
  - Mania [Recovered/Resolved]
  - Delirium [Unknown]
  - Gastrooesophageal reflux disease [Unknown]
  - Product outer packaging issue [Unknown]
  - Cerebrovascular accident [Recovering/Resolving]
  - Intentional product misuse [Unknown]

NARRATIVE: CASE EVENT DATE: 201207
